FAERS Safety Report 5511543-1 (Version None)
Quarter: 2007Q4

REPORT INFORMATION
  Report Type: 
  Country: None (occurrence: None)
  Receive Date: 20071109
  Receipt Date: 20071102
  Transmission Date: 20080405
  Serious: Yes (Hospitalization, Other)
  Sender: FDA-Public Use
  Company Number: US-MERCK-0708USA00144

PATIENT
  Age: 49 Year
  Sex: Female

DRUGS (1)
  1. FOSAMAX [Suspect]
     Indication: OSTEOPOROSIS
     Route: 048
     Dates: start: 20000218, end: 20051101

REACTIONS (5)
  - ARTHRALGIA [None]
  - DENTAL CARIES [None]
  - HERNIA [None]
  - HIP SWELLING [None]
  - OSTEOMYELITIS [None]
